FAERS Safety Report 11418934 (Version 1)
Quarter: 2015Q3

REPORT INFORMATION
  Report Type: Spontaneous
  Country: US (occurrence: US)
  Receive Date: 20150826
  Receipt Date: 20150826
  Transmission Date: 20151125
  Serious: No
  Sender: FDA-Public Use
  Company Number: US-TEVA-529244USA

PATIENT
  Age: 68 Year
  Sex: Male

DRUGS (1)
  1. FEXOFENADINE [Suspect]
     Active Substance: FEXOFENADINE\FEXOFENADINE HYDROCHLORIDE
     Indication: SEASONAL ALLERGY
     Route: 048
     Dates: start: 20141208, end: 20141208

REACTIONS (5)
  - Hyperhidrosis [Unknown]
  - Hypersensitivity [Unknown]
  - Swelling face [Recovering/Resolving]
  - Swollen tongue [Recovering/Resolving]
  - Mouth swelling [Recovering/Resolving]

NARRATIVE: CASE EVENT DATE: 20141209
